FAERS Safety Report 8942749 (Version 3)
Quarter: 2013Q1

REPORT INFORMATION
  Report Type: Spontaneous
  Country: GB (occurrence: None)
  Receive Date: 20121123
  Receipt Date: 20130208
  Transmission Date: 20140127
  Serious: Yes (Other)
  Sender: FDA-Public Use
  Company Number: 2012-20124

PATIENT
  Age: 38 Year
  Sex: Male

DRUGS (7)
  1. OMEPRAZOLE [Suspect]
     Indication: ABDOMINAL PAIN
     Dates: start: 201204, end: 201210
  2. DOXYCYCLINE [Suspect]
     Indication: URINARY TRACT INFECTION
     Dates: start: 201111
  3. MINOCYCLINE [Suspect]
     Indication: PRODUCT USED FOR UNKNOWN INDICATION
  4. NITROFURANTOIN [Suspect]
     Indication: PRODUCT USED FOR UNKNOWN INDICATION
  5. CIPROFLOXACIN HYDROCHLORIDE (CIPROFLOXACIN HYDROCHLORIDE) [Suspect]
     Indication: PRODUCT USED FOR UNKNOWN INDICATION
     Dates: start: 201206
  6. SEROQUEL (QUETIAPINE FUMARATE) [Suspect]
     Indication: ANXIETY
  7. LAXIDO (ELECTROLYTES NOS, MACROGOL 3350) [Concomitant]

REACTIONS (23)
  - Gastric ulcer [None]
  - Gastrooesophageal reflux disease [None]
  - Headache [None]
  - Hair colour changes [None]
  - Malaise [None]
  - Abdominal discomfort [None]
  - Chromaturia [None]
  - Melanocytic naevus [None]
  - Skin exfoliation [None]
  - Dehydration [None]
  - Photosensitivity reaction [None]
  - Skin depigmentation [None]
  - Tooth injury [None]
  - Drug ineffective [None]
  - Hormone level abnormal [None]
  - Skin discolouration [None]
  - Urinary tract infection [None]
  - Dermatitis [None]
  - Alopecia [None]
  - Pain [None]
  - Skin mass [None]
  - Gastric infection [None]
  - Gastrointestinal infection [None]
